FAERS Safety Report 26110724 (Version 2)
Quarter: 2025Q4

REPORT INFORMATION
  Report Type: Spontaneous
  Country: US (occurrence: US)
  Receive Date: 20251202
  Receipt Date: 20251208
  Transmission Date: 20260118
  Serious: No
  Sender: TEVA
  Company Number: US-ABBVIE-6553996

PATIENT
  Age: 68 Year
  Sex: Female

DRUGS (1)
  1. OXYTROL [Suspect]
     Active Substance: OXYBUTYNIN
     Indication: Hypertonic bladder
     Dosage: STARTED: 6-8 YEARS AGO
     Route: 062

REACTIONS (5)
  - Skin burning sensation [Not Recovered/Not Resolved]
  - Product adhesion issue [Unknown]
  - Liquid product physical issue [Unknown]
  - Feeling hot [Unknown]
  - Inappropriate schedule of product administration [Unknown]

NARRATIVE: CASE EVENT DATE: 20251101
